FAERS Safety Report 25919944 (Version 1)
Quarter: 2025Q4

REPORT INFORMATION
  Report Type: Spontaneous
  Country: EU (occurrence: EU)
  Receive Date: 20251014
  Receipt Date: 20251014
  Transmission Date: 20260118
  Serious: Yes (Other)
  Sender: MYLAN
  Company Number: EU-ELI_LILLY_AND_COMPANY-FR202509006816

PATIENT
  Age: 38 Year
  Sex: Female
  Weight: 46 kg

DRUGS (16)
  1. ATORVASTATIN [Suspect]
     Active Substance: ATORVASTATIN
     Indication: Blood cholesterol increased
     Dosage: 80 MILLIGRAM, 80 MG
  2. ATORVASTATIN [Suspect]
     Active Substance: ATORVASTATIN
     Dosage: 80 MILLIGRAM, 80 MG
     Route: 065
  3. ATORVASTATIN [Suspect]
     Active Substance: ATORVASTATIN
     Dosage: 80 MILLIGRAM, 80 MG
     Route: 065
  4. ATORVASTATIN [Suspect]
     Active Substance: ATORVASTATIN
     Dosage: 80 MILLIGRAM, 80 MG
  5. RETEVMO [Suspect]
     Active Substance: SELPERCATINIB
     Indication: Non-small cell lung cancer
     Dosage: 240 MILLIGRAM, QD
     Dates: start: 20250707, end: 20250807
  6. RETEVMO [Suspect]
     Active Substance: SELPERCATINIB
     Dosage: 240 MILLIGRAM, QD
     Dates: start: 20250707, end: 20250807
  7. RETEVMO [Suspect]
     Active Substance: SELPERCATINIB
     Dosage: 240 MILLIGRAM, QD
     Route: 048
     Dates: start: 20250707, end: 20250807
  8. RETEVMO [Suspect]
     Active Substance: SELPERCATINIB
     Dosage: 240 MILLIGRAM, QD
     Route: 048
     Dates: start: 20250707, end: 20250807
  9. RETEVMO [Suspect]
     Active Substance: SELPERCATINIB
     Dosage: 160 MILLIGRAM, QD
     Dates: start: 20250812
  10. RETEVMO [Suspect]
     Active Substance: SELPERCATINIB
     Dosage: 160 MILLIGRAM, QD
     Dates: start: 20250812
  11. RETEVMO [Suspect]
     Active Substance: SELPERCATINIB
     Dosage: 160 MILLIGRAM, QD
     Route: 048
     Dates: start: 20250812
  12. RETEVMO [Suspect]
     Active Substance: SELPERCATINIB
     Dosage: 160 MILLIGRAM, QD
     Route: 048
     Dates: start: 20250812
  13. EZETIMIBE [Concomitant]
     Active Substance: EZETIMIBE
     Indication: Blood cholesterol increased
     Dosage: UNK, UNKNOWN
  14. EZETIMIBE [Concomitant]
     Active Substance: EZETIMIBE
     Dosage: UNK, UNKNOWN
     Route: 065
  15. EZETIMIBE [Concomitant]
     Active Substance: EZETIMIBE
     Dosage: UNK, UNKNOWN
     Route: 065
  16. EZETIMIBE [Concomitant]
     Active Substance: EZETIMIBE
     Dosage: UNK, UNKNOWN

REACTIONS (2)
  - Hepatic cytolysis [Recovering/Resolving]
  - Nausea [Recovering/Resolving]
